FAERS Safety Report 19146249 (Version 2)
Quarter: 2021Q2

REPORT INFORMATION
  Report Type: Spontaneous
  Country: FR (occurrence: FR)
  Receive Date: 20210416
  Receipt Date: 20210531
  Transmission Date: 20210717
  Serious: Yes (Hospitalization, Other)
  Sender: FDA-Public Use
  Company Number: FR-CELLTRION INC.-2021FR004674

PATIENT

DRUGS (4)
  1. BELIMUMAB [Suspect]
     Active Substance: BELIMUMAB
     Indication: CRYOGLOBULINAEMIA
     Dosage: 10 MG/KG, (ON DAYS 0, 14, 28 AND THEN EVERY MONTH ADDED)
     Route: 042
     Dates: start: 201701
  2. RITUXIMAB (UNKNOWN) [Suspect]
     Active Substance: RITUXIMAB
     Dosage: 500 MG
     Route: 042
  3. RITUXIMAB (UNKNOWN) [Suspect]
     Active Substance: RITUXIMAB
     Indication: CRYOGLOBULINAEMIA
     Dosage: SINGLE DOSE
     Route: 042
     Dates: start: 201701
  4. RITUXIMAB (UNKNOWN) [Suspect]
     Active Substance: RITUXIMAB
     Dosage: 500 MG, EVERY 6 MONTHS

REACTIONS (5)
  - Urinary tract infection [Recovered/Resolved]
  - Off label use [Unknown]
  - Hypogammaglobulinaemia [Unknown]
  - Osteitis [Recovered/Resolved]
  - Soft tissue infection [Unknown]

NARRATIVE: CASE EVENT DATE: 2017
